FAERS Safety Report 7607530-X (Version None)
Quarter: 2011Q3

REPORT INFORMATION
  Report Type: 
  Country: None (occurrence: None)
  Receive Date: 20110713
  Receipt Date: 20110707
  Transmission Date: 20111222
  Serious: Yes (Other)
  Sender: FDA-Public Use
  Company Number: US-BAYER-2011-059148

PATIENT
  Age: 61 Year
  Sex: Female
  Weight: 79.4 kg

DRUGS (13)
  1. FUROSEMIDE [Suspect]
     Dosage: 40 MG, BID
  2. CENTRUM [Concomitant]
     Dosage: UNK
  3. LYRICA [Suspect]
     Indication: FIBROMYALGIA
  4. ACETAMINOPHEN [Suspect]
     Indication: PAIN IN EXTREMITY
     Dosage: UNK
  5. CIPROFLOXACIN HCL [Suspect]
     Indication: INFECTION
  6. VICODIN [Suspect]
     Indication: PAIN IN EXTREMITY
     Dosage: UNK
     Route: 048
  7. CIPROFLOXACIN HCL [Suspect]
     Indication: PAIN IN EXTREMITY
     Dosage: UNK
  8. LYRICA [Suspect]
     Indication: PAIN IN EXTREMITY
  9. CODEINE SULFATE [Suspect]
     Indication: PAIN IN EXTREMITY
     Dosage: UNK
  10. ASPIRIN [Concomitant]
     Dosage: 81 MG, UNK
  11. DARVOCET-N 50 [Suspect]
     Indication: PAIN IN EXTREMITY
     Dosage: UNK
     Route: 048
  12. LYRICA [Suspect]
     Indication: HYPOAESTHESIA
     Dosage: UNK
     Route: 048
     Dates: start: 20071101, end: 20071201
  13. KEFLEX [Concomitant]
     Dosage: UNK

REACTIONS (19)
  - NERVE INJURY [None]
  - CELLULITIS [None]
  - THROMBOSIS [None]
  - APHAGIA [None]
  - RASH ERYTHEMATOUS [None]
  - GANGRENE [None]
  - HYPOAESTHESIA [None]
  - WEIGHT DECREASED [None]
  - ALOPECIA [None]
  - WEIGHT INCREASED [None]
  - OEDEMA PERIPHERAL [None]
  - BACTERIAL INFECTION [None]
  - RASH VESICULAR [None]
  - SKIN EROSION [None]
  - DEPRESSION [None]
  - NAUSEA [None]
  - RASH [None]
  - SKIN DISCOLOURATION [None]
  - PAIN [None]
